FAERS Safety Report 6957481-9 (Version None)
Quarter: 2010Q3

REPORT INFORMATION
  Report Type: 
  Country: None (occurrence: None)
  Receive Date: 20100826
  Receipt Date: 20100816
  Transmission Date: 20110219
  Serious: Yes (Other)
  Sender: FDA-Public Use
  Company Number: US-1183031

PATIENT
  Age: 45 Year
  Sex: Female

DRUGS (3)
  1. SYSTANE EYE DROPS [Suspect]
     Dosage: OPHTHALMIC, OPHTHALMIC
     Route: 047
     Dates: start: 20100618, end: 20100601
  2. SYSTANE EYE DROPS [Suspect]
     Dosage: OPTHALMIC, OPTHALMIC
     Route: 047
     Dates: start: 20100618, end: 20100101
  3. SYSTANE EYE DROPS [Suspect]
     Dosage: OPTHALMIC, OPTHALMIC
     Route: 047
     Dates: start: 20100813, end: 20100801

REACTIONS (3)
  - CORNEAL DISORDER [None]
  - DRUG DISPENSING ERROR [None]
  - EXPIRED DRUG ADMINISTERED [None]
